FAERS Safety Report 11123556 (Version 2)
Quarter: 2018Q1

REPORT INFORMATION
  Report Type: Spontaneous
  Country: US (occurrence: US)
  Receive Date: 20150519
  Receipt Date: 20180327
  Transmission Date: 20180508
  Serious: Yes (Hospitalization, Other)
  Sender: FDA-Public Use
  Company Number: US-ENDO PHARMACEUTICALS INC.-201501167

PATIENT
  Age: 59 Year
  Sex: Male
  Weight: 99.77 kg

DRUGS (2)
  1. TESTOPEL [Suspect]
     Active Substance: TESTOSTERONE
     Indication: ASTHENIA
     Dosage: UNK UNKNOWN, UNKNOWN
     Route: 058
     Dates: start: 20120919, end: 20130303
  2. TESTIM [Suspect]
     Active Substance: TESTOSTERONE
     Indication: ASTHENIA
     Dosage: 50 MG, DAILY
     Route: 062
     Dates: start: 20110715, end: 2012

REACTIONS (3)
  - Cardiomyopathy [Unknown]
  - Atrial fibrillation [Not Recovered/Not Resolved]
  - Atrial thrombosis [Unknown]

NARRATIVE: CASE EVENT DATE: 2013
